FAERS Safety Report 13404781 (Version 1)
Quarter: 2017Q2

REPORT INFORMATION
  Report Type: Spontaneous
  Country: GB (occurrence: US)
  Receive Date: 20170405
  Receipt Date: 20170405
  Transmission Date: 20170830
  Serious: Yes (Hospitalization)
  Sender: FDA-Public Use
  Company Number: None

PATIENT
  Age: 19 Year
  Sex: Female
  Weight: 63 kg

DRUGS (4)
  1. METRONIDAZOLE. [Concomitant]
     Active Substance: METRONIDAZOLE
  2. CEFELAXIN [Concomitant]
  3. MIRENA [Suspect]
     Active Substance: LEVONORGESTREL
  4. DOXYCYCLINE. [Concomitant]
     Active Substance: DOXYCYCLINE

REACTIONS (3)
  - Abdominal pain [None]
  - Loss of personal independence in daily activities [None]
  - Pelvic inflammatory disease [None]

NARRATIVE: CASE EVENT DATE: 20170305
